FAERS Safety Report 6257993-X (Version None)
Quarter: 2009Q3

REPORT INFORMATION
  Report Type: 
  Country: None (occurrence: None)
  Receive Date: 20090707
  Receipt Date: 20090629
  Transmission Date: 20100115
  Serious: Yes (Hospitalization)
  Sender: FDA-Public Use
  Company Number: FR-PFIZER INC-2009233435

PATIENT
  Age: 75 Year

DRUGS (16)
  1. TAHOR [Suspect]
     Dosage: 10 MG, 1X/DAY
     Route: 048
  2. SPIRIVA [Suspect]
     Dosage: 1 DF, 1X/DAY
     Route: 055
  3. COLCHIMAX [Suspect]
     Indication: GOUT
     Dosage: UNK
     Route: 048
     Dates: start: 20081031, end: 20081031
  4. COLCHIMAX [Suspect]
     Dosage: UNK
     Route: 048
     Dates: start: 20081101, end: 20081101
  5. COLCHIMAX [Suspect]
     Dosage: UNK
     Route: 048
     Dates: start: 20081102, end: 20081102
  6. LASIX [Suspect]
     Dosage: UNK
     Route: 048
  7. LASIX [Suspect]
     Dosage: UNK
     Route: 048
     Dates: start: 20091106
  8. CARDENSIEL [Suspect]
     Dosage: 5 MG, 1X/DAY
     Route: 048
  9. STABLON [Suspect]
     Dosage: 1 DF, 3X/DAY
     Route: 048
  10. ZOLPIDEM TARTRATE [Suspect]
     Dosage: 1.5 DF, 1X/DAY
     Route: 048
  11. TRIATEC [Suspect]
     Dosage: 10 MG, 1X/DAY
     Route: 048
  12. TRIATEC [Suspect]
     Dosage: UNK
     Route: 048
     Dates: start: 20081107
  13. PULMICORT-100 [Suspect]
     Dosage: 1 DF, 2X/DAY
     Route: 055
  14. COUMADIN [Suspect]
     Dosage: UNK
     Route: 048
     Dates: end: 20091106
  15. COUMADIN [Suspect]
     Dosage: UNK
     Route: 048
     Dates: start: 20081112
  16. DIFFU K [Suspect]
     Dosage: 1 DF, 1X/DAY
     Route: 048
     Dates: end: 20081114

REACTIONS (5)
  - DEHYDRATION [None]
  - DIARRHOEA [None]
  - FOOD INTOLERANCE [None]
  - NAUSEA [None]
  - VOMITING [None]
